FAERS Safety Report 13229242 (Version 5)
Quarter: 2017Q2

REPORT INFORMATION
  Report Type: Report from Study
  Country: KR (occurrence: KR)
  Receive Date: 20170214
  Receipt Date: 20170518
  Transmission Date: 20170830
  Serious: Yes (Hospitalization)
  Sender: FDA-Public Use
  Company Number: KR-ROCHE-1892296

PATIENT
  Age: 62 Year
  Sex: Male
  Weight: 60 kg

DRUGS (16)
  1. MAXNOPHEN [Concomitant]
     Indication: CANCER PAIN
     Route: 065
     Dates: start: 20170114, end: 20170116
  2. LIDOCAINA VISCOSA [Concomitant]
     Indication: STOMATITIS
     Route: 065
     Dates: start: 20170119, end: 20170124
  3. MEGESTROL [Concomitant]
     Active Substance: MEGESTROL
     Indication: DECREASED APPETITE
     Route: 065
     Dates: start: 20170102, end: 20170210
  4. TRAMADOL. [Concomitant]
     Active Substance: TRAMADOL
     Indication: CANCER PAIN
     Route: 065
     Dates: start: 20170114, end: 20170114
  5. HEPATAMINE [Concomitant]
     Active Substance: ALANINE\ARGININE\CYSTEINE\GLYCINE\HISTIDINE\ISOLEUCINE\LEUCINE\LYSINE\METHIONINE\PHENYLALANINE\PROLINE\SERINE\THREONINE\TRYPTOPHAN\VALINE
     Indication: DECREASED APPETITE
     Route: 065
     Dates: start: 20170114, end: 20170114
  6. ADIPAM (SOUTH KOREA) [Concomitant]
     Indication: URTICARIA
     Route: 065
     Dates: start: 20170118, end: 20170123
  7. ATEZOLIZUMAB [Suspect]
     Active Substance: ATEZOLIZUMAB
     Indication: NON-SMALL CELL LUNG CANCER
     Dosage: THE MOST RECENT DOSE OF ATEZOLIZUMAB WAS ADMINISTERED ON 02/JAN/2017.
     Route: 042
     Dates: start: 20170102
  8. ALLEGRA [Concomitant]
     Active Substance: FEXOFENADINE HYDROCHLORIDE
     Indication: URTICARIA
     Route: 065
     Dates: start: 20170116, end: 20170124
  9. TARGIN [Concomitant]
     Active Substance: NALOXONE HYDROCHLORIDE\OXYCODONE HYDROCHLORIDE
     Indication: CANCER PAIN
     Route: 065
     Dates: start: 20170120, end: 20170209
  10. DEXTROSE/SODIUM CHLORIDE [Concomitant]
     Indication: DECREASED APPETITE
     Route: 065
     Dates: start: 20170116, end: 20170120
  11. XYZAL [Concomitant]
     Active Substance: LEVOCETIRIZINE DIHYDROCHLORIDE
     Indication: URTICARIA
     Route: 065
     Dates: start: 20170118, end: 20170207
  12. SMOFLIPID [Concomitant]
     Active Substance: FISH OIL\MEDIUM-CHAIN TRIGLYCERIDES\OLIVE OIL\SOYBEAN OIL
     Indication: DECREASED APPETITE
     Route: 065
     Dates: start: 20170116, end: 20170120
  13. MAXNOPHEN [Concomitant]
     Indication: TUMOUR PAIN
     Route: 065
     Dates: start: 20170117, end: 20170210
  14. TACOPEN [Concomitant]
     Indication: CANCER PAIN
     Route: 065
     Dates: start: 20170117, end: 20170209
  15. SMOFLIPID [Concomitant]
     Active Substance: FISH OIL\MEDIUM-CHAIN TRIGLYCERIDES\OLIVE OIL\SOYBEAN OIL
     Route: 065
     Dates: start: 20170210, end: 20170210
  16. DESOWEN [Concomitant]
     Active Substance: DESONIDE
     Indication: URTICARIA
     Route: 065
     Dates: start: 20170116, end: 20170210

REACTIONS (1)
  - Delirium [Not Recovered/Not Resolved]

NARRATIVE: CASE EVENT DATE: 20170206
